FAERS Safety Report 6858287-1 (Version None)
Quarter: 2010Q3

REPORT INFORMATION
  Report Type: 
  Country: None (occurrence: None)
  Receive Date: 20100719
  Receipt Date: 20080718
  Transmission Date: 20110219
  Serious: No
  Sender: FDA-Public Use
  Company Number: US-PFIZER INC-2008012390

PATIENT
  Sex: Female
  Weight: 110.7 kg

DRUGS (2)
  1. CHANTIX [Suspect]
     Indication: SMOKING CESSATION THERAPY
     Route: 048
     Dates: start: 20080128, end: 20080201
  2. TOPAMAX [Concomitant]

REACTIONS (7)
  - ABDOMINAL PAIN UPPER [None]
  - BREAST PAIN [None]
  - DYSPEPSIA [None]
  - NAUSEA [None]
  - UNEVALUABLE EVENT [None]
  - URINARY TRACT INFECTION [None]
  - VOMITING [None]
